FAERS Safety Report 12877055 (Version 2)
Quarter: 2016Q4

REPORT INFORMATION
  Report Type: Spontaneous
  Country: US (occurrence: US)
  Receive Date: 20161024
  Receipt Date: 20161202
  Transmission Date: 20170207
  Serious: Yes (Death)
  Sender: FDA-Public Use
  Company Number: US-PFIZER INC-2016491743

PATIENT
  Age: 65 Year
  Sex: Male

DRUGS (1)
  1. VFEND [Suspect]
     Active Substance: VORICONAZOLE
     Dosage: 10 MG, 2X/DAY
     Dates: start: 20160403

REACTIONS (1)
  - Death [Fatal]

NARRATIVE: CASE EVENT DATE: 20160622
